FAERS Safety Report 6295668-1 (Version None)
Quarter: 2009Q3

REPORT INFORMATION
  Report Type: 
  Country: None (occurrence: None)
  Receive Date: 20090803
  Receipt Date: 20090803
  Transmission Date: 20100115
  Serious: Yes (Life-Threatening, Disabling, Other)
  Sender: FDA-Public Use
  Company Number: None

PATIENT
  Age: 73 Year
  Sex: Male
  Weight: 68.0396 kg

DRUGS (2)
  1. VICODIN [Suspect]
     Indication: HEAD INJURY
     Dosage: VICODIN 1 WEEK DOSES ORAL
     Route: 048
  2. VICODIN ES [Suspect]
     Indication: PAIN
     Dosage: VICODIN ES 40 / MONTH ORAL
     Route: 048

REACTIONS (1)
  - DRUG INEFFECTIVE [None]
